FAERS Safety Report 4623197-7 (Version None)
Quarter: 2005Q1

REPORT INFORMATION
  Report Type: 
  Country: None (occurrence: None)
  Receive Date: 20050329
  Receipt Date: 20050314
  Transmission Date: 20050727
  Serious: Yes (Hospitalization)
  Sender: FDA-Public Use
  Company Number: 206415

PATIENT
  Age: 47 Year
  Sex: Female

DRUGS (3)
  1. AVONEX [Suspect]
     Indication: MULTIPLE SCLEROSIS
     Dosage: 30 UG; QW; IM
     Route: 030
     Dates: start: 20021017
  2. AVONEX [Suspect]
     Indication: MULTIPLE SCLEROSIS
     Dosage: 3O UG; QW; IM
     Route: 030
     Dates: end: 20041012
  3. COPAXONE [Concomitant]

REACTIONS (4)
  - COGNITIVE DISORDER [None]
  - LOSS OF CONSCIOUSNESS [None]
  - MEMORY IMPAIRMENT [None]
  - STATUS EPILEPTICUS [None]
